FAERS Safety Report 14698142 (Version 1)
Quarter: 2018Q1

REPORT INFORMATION
  Report Type: Spontaneous
  Country: RU (occurrence: RU)
  Receive Date: 20180330
  Receipt Date: 20180330
  Transmission Date: 20180509
  Serious: Yes (Other)
  Sender: FDA-Public Use
  Company Number: RU-ROCHE-2093976

PATIENT
  Age: 49 Year
  Sex: Female

DRUGS (1)
  1. KADCYLA [Suspect]
     Active Substance: ADO-TRASTUZUMAB EMTANSINE
     Indication: HER-2 POSITIVE BREAST CANCER
     Dosage: 160 MG 1 /28 DAY
     Route: 065
     Dates: start: 2015

REACTIONS (3)
  - Hypoproteinaemia [Recovering/Resolving]
  - Erysipelas [Recovered/Resolved]
  - Swelling [Recovering/Resolving]
